APPROVED DRUG PRODUCT: ARNUITY ELLIPTA
Active Ingredient: FLUTICASONE FUROATE
Strength: 0.05MG/INH
Dosage Form/Route: POWDER;INHALATION
Application: N205625 | Product #003
Applicant: GLAXOSMITHKLINE INTELLECTUAL PROPERTY DEVELOPMENT LTD ENGLAND
Approved: May 17, 2018 | RLD: Yes | RS: Yes | Type: RX

EXCLUSIVITY:
Code: M-290 | Date: Mar 1, 2026